FAERS Safety Report 11674419 (Version 3)
Quarter: 2016Q1

REPORT INFORMATION
  Report Type: Spontaneous
  Country: US (occurrence: US)
  Receive Date: 20151028
  Receipt Date: 20160225
  Transmission Date: 20160525
  Serious: Yes (Hospitalization)
  Sender: FDA-Public Use
  Company Number: US-PFIZER INC-2015344503

PATIENT
  Age: 66 Year
  Sex: Female

DRUGS (5)
  1. DILTIAZEM [Concomitant]
     Active Substance: DILTIAZEM
     Dosage: 120 MG, DAILY
  2. ASA [Concomitant]
     Active Substance: ASPIRIN
     Dosage: UNK (325)
  3. TIKOSYN [Suspect]
     Active Substance: DOFETILIDE
     Indication: ATRIAL FIBRILLATION
     Dosage: 500 ?G, 2X/DAY (EVERY 12 HRS)
     Route: 048
     Dates: start: 20151002
  4. ARMOUR THYROID [Concomitant]
     Active Substance: THYROID, PORCINE
     Dosage: 60 MG, UNK
  5. LIPITOR [Concomitant]
     Active Substance: ATORVASTATIN CALCIUM
     Dosage: 10 MG, UNK

REACTIONS (8)
  - Dizziness [Unknown]
  - Dyspnoea [Unknown]
  - Chest pain [Unknown]
  - Weight increased [Unknown]
  - Arrhythmia [Unknown]
  - Loss of libido [Unknown]
  - Malaise [Unknown]
  - Nausea [Unknown]

NARRATIVE: CASE EVENT DATE: 20151012
